FAERS Safety Report 21872906 (Version 1)
Quarter: 2023Q1

REPORT INFORMATION
  Report Type: Spontaneous
  Country: US (occurrence: None)
  Receive Date: 20230115
  Receipt Date: 20230115
  Transmission Date: 20230417
  Serious: Yes (Disabling)
  Sender: FDA-Public Use
  Company Number: None

PATIENT
  Sex: Female

DRUGS (2)
  1. HYDROGEN PEROXIDE [Suspect]
     Active Substance: HYDROGEN PEROXIDE
     Indication: Product used for unknown indication
     Dates: start: 20221107, end: 20221107
  2. CLOTRIMAZOLE [Suspect]
     Active Substance: CLOTRIMAZOLE

REACTIONS (7)
  - Oral discomfort [None]
  - Oral pain [None]
  - Taste disorder [None]
  - Speech disorder [None]
  - Nervous system disorder [None]
  - Loss of personal independence in daily activities [None]
  - Insomnia [None]

NARRATIVE: CASE EVENT DATE: 20221107
